FAERS Safety Report 6156457-1 (Version None)
Quarter: 2009Q2

REPORT INFORMATION
  Report Type: 
  Country: None (occurrence: None)
  Receive Date: 20090416
  Receipt Date: 20080108
  Transmission Date: 20091009
  Serious: No
  Sender: FDA-Public Use
  Company Number: US-ASTRAZENECA-2006UW22589

PATIENT
  Age: 17867 Day
  Sex: Female
  Weight: 108.4 kg

DRUGS (25)
  1. SEROQUEL [Suspect]
     Indication: SCHIZOPHRENIA
     Route: 048
     Dates: start: 20030101
  2. SEROQUEL [Suspect]
     Indication: BIPOLAR DISORDER
     Route: 048
     Dates: start: 20030101
  3. SEROQUEL [Suspect]
     Indication: DEPRESSION
     Route: 048
     Dates: start: 20030101
  4. SEROQUEL [Suspect]
     Dosage: 50 MG TO 200 MG
     Route: 048
     Dates: start: 20031210
  5. SEROQUEL [Suspect]
     Dosage: 50 MG TO 200 MG
     Route: 048
     Dates: start: 20031210
  6. SEROQUEL [Suspect]
     Dosage: 50 MG TO 200 MG
     Route: 048
     Dates: start: 20031210
  7. SPIRIVA [Concomitant]
  8. METHOCARBAMOL [Concomitant]
  9. ALBUTEROL [Concomitant]
  10. DUONEB [Concomitant]
  11. INDOCIN [Concomitant]
  12. TYLENOL [Concomitant]
  13. LEVOXYL [Concomitant]
  14. NEURONTIN [Concomitant]
  15. BENTYL [Concomitant]
  16. METFORMIN HCL [Concomitant]
  17. PROVENTIL [Concomitant]
  18. IMODIUM [Concomitant]
  19. ROBAXIN [Concomitant]
  20. FLONASE INHA [Concomitant]
  21. FLOVENT [Concomitant]
  22. WELLBUTRIN SR [Concomitant]
  23. FERROUS SULFATE TAB [Concomitant]
  24. CALCIUM [Concomitant]
  25. GLUCOSAMINE [Concomitant]

REACTIONS (15)
  - AFFECTIVE DISORDER [None]
  - BACK PAIN [None]
  - BRONCHITIS [None]
  - BRONCHITIS CHRONIC [None]
  - CHEST PAIN [None]
  - DEPRESSION [None]
  - DIABETES MELLITUS [None]
  - LUMBAR SPINAL STENOSIS [None]
  - METABOLIC SYNDROME [None]
  - MUSCLE SPASMS [None]
  - OEDEMA [None]
  - OSTEOARTHRITIS [None]
  - RENAL IMPAIRMENT [None]
  - RHINITIS ALLERGIC [None]
  - THROMBOCYTOPENIA [None]
